FAERS Safety Report 25626710 (Version 1)
Quarter: 2025Q3

REPORT INFORMATION
  Report Type: Spontaneous
  Country: IN (occurrence: IN)
  Receive Date: 20250731
  Receipt Date: 20250731
  Transmission Date: 20251020
  Serious: Yes (Hospitalization)
  Sender: MYLAN
  Company Number: IN-MYLANLABS-2025M1064726

PATIENT
  Age: 48 Year
  Sex: Female

DRUGS (12)
  1. SERTRALINE [Suspect]
     Active Substance: SERTRALINE HYDROCHLORIDE
     Indication: Depressive symptom
     Dosage: 100 MILLIGRAM, QD
  2. SERTRALINE [Suspect]
     Active Substance: SERTRALINE HYDROCHLORIDE
     Dosage: 100 MILLIGRAM, QD
     Route: 065
  3. SERTRALINE [Suspect]
     Active Substance: SERTRALINE HYDROCHLORIDE
     Dosage: 100 MILLIGRAM, QD
     Route: 065
  4. SERTRALINE [Suspect]
     Active Substance: SERTRALINE HYDROCHLORIDE
     Dosage: 100 MILLIGRAM, QD
  5. VALPROATE [Concomitant]
     Active Substance: VALPROIC ACID
     Indication: Schizophrenia
  6. VALPROATE [Concomitant]
     Active Substance: VALPROIC ACID
     Route: 065
  7. VALPROATE [Concomitant]
     Active Substance: VALPROIC ACID
     Route: 065
  8. VALPROATE [Concomitant]
     Active Substance: VALPROIC ACID
  9. MEMANTINE [Concomitant]
     Active Substance: MEMANTINE
     Indication: Dementia
     Dosage: 15 MILLIGRAM, QD
  10. MEMANTINE [Concomitant]
     Active Substance: MEMANTINE
     Dosage: 15 MILLIGRAM, QD
     Route: 065
  11. MEMANTINE [Concomitant]
     Active Substance: MEMANTINE
     Dosage: 15 MILLIGRAM, QD
     Route: 065
  12. MEMANTINE [Concomitant]
     Active Substance: MEMANTINE
     Dosage: 15 MILLIGRAM, QD

REACTIONS (1)
  - Drug ineffective [Unknown]
